FAERS Safety Report 5728447-1 (Version None)
Quarter: 2008Q2

REPORT INFORMATION
  Report Type: 
  Country: None (occurrence: None)
  Receive Date: 20080506
  Receipt Date: 20080425
  Transmission Date: 20081010
  Serious: Yes (Hospitalization)
  Sender: FDA-Public Use
  Company Number: US-AMGEN-QUU272420

PATIENT
  Sex: Female
  Weight: 67 kg

DRUGS (4)
  1. NEULASTA [Suspect]
     Indication: CHEMOTHERAPY
     Route: 058
     Dates: start: 20080325
  2. ADRIAMYCIN PFS [Suspect]
     Dates: start: 20080324
  3. CYTOXAN [Suspect]
     Dates: start: 20080324
  4. TAXOTERE [Suspect]
     Dates: start: 20080324, end: 20080324

REACTIONS (4)
  - DRUG INEFFECTIVE [None]
  - FEBRILE NEUTROPENIA [None]
  - LEUKOPENIA [None]
  - NEUTROPENIA [None]
